FAERS Safety Report 6965077-8 (Version None)
Quarter: 2010Q3

REPORT INFORMATION
  Report Type: 
  Country: None (occurrence: None)
  Receive Date: 20100903
  Receipt Date: 20100826
  Transmission Date: 20110219
  Serious: No
  Sender: FDA-Public Use
  Company Number: US-ROXANE LABORATORIES, INC.-2010-RO-00908RO

PATIENT
  Sex: Female

DRUGS (1)
  1. TERBINAFINE HCL [Suspect]
     Indication: TINEA PEDIS
     Route: 048
     Dates: start: 20100401, end: 20100401

REACTIONS (1)
  - DRUG INEFFECTIVE [None]
